FAERS Safety Report 10202571 (Version 1)
Quarter: 2014Q2

REPORT INFORMATION
  Report Type: Report from Study
  Country: US (occurrence: US)
  Receive Date: 20140528
  Receipt Date: 20140528
  Transmission Date: 20141212
  Serious: Yes (Hospitalization)
  Sender: FDA-Public Use
  Company Number: US-ABBVIE-14P-163-1239300-00

PATIENT
  Age: 58 Year
  Sex: Female
  Weight: 89.89 kg

DRUGS (11)
  1. HUMIRA [Suspect]
     Indication: PSORIATIC ARTHROPATHY
     Dates: start: 2012, end: 2012
  2. HUMIRA [Suspect]
     Indication: PSORIASIS
     Dates: start: 2012, end: 201308
  3. HUMIRA [Suspect]
     Indication: NAIL PSORIASIS
  4. LISINOPRIL [Concomitant]
     Indication: HYPERTENSION
  5. DULOXETINE [Concomitant]
     Indication: ANTIDEPRESSANT THERAPY
  6. NORTRIPTYLINE [Concomitant]
     Indication: NECK PAIN
     Dosage: AT BEDTIME
  7. FUROSEMIDE [Concomitant]
     Indication: FLUID RETENTION
  8. PROBIOTIC [Concomitant]
     Indication: PROBIOTIC THERAPY
  9. MULTIVITAMIN [Concomitant]
     Indication: VITAMIN SUPPLEMENTATION
  10. ALLEGRA [Concomitant]
     Indication: PRODUCT USED FOR UNKNOWN INDICATION
  11. TRIAMCINOLONE [Concomitant]
     Indication: PSORIASIS

REACTIONS (7)
  - Blister [Recovered/Resolved]
  - Skin warm [Recovered/Resolved]
  - Cellulitis [Recovered/Resolved]
  - Psoriasis [Not Recovered/Not Resolved]
  - Psoriatic arthropathy [Not Recovered/Not Resolved]
  - Pain in extremity [Recovered/Resolved]
  - Infection [Not Recovered/Not Resolved]
